FAERS Safety Report 16262415 (Version 1)
Quarter: 2019Q2

REPORT INFORMATION
  Report Type: Spontaneous
  Country: CN (occurrence: CN)
  Receive Date: 20190501
  Receipt Date: 20190501
  Transmission Date: 20190711
  Serious: Yes (Other)
  Sender: FDA-Public Use
  Company Number: CN-BAXTER-2019BAX008523

PATIENT
  Age: 42 Year
  Sex: Female
  Weight: 55 kg

DRUGS (12)
  1. PHARMORUBICIN RD [Suspect]
     Active Substance: EPIRUBICIN
     Indication: BREAST CANCER FEMALE
     Dosage: PHARMORUBICIN RD 135 MG + NS 100 ML, 4TH CHEMOTHERAPY
     Route: 041
     Dates: start: 20190219, end: 20190219
  2. ENDOXAN [Suspect]
     Active Substance: CYCLOPHOSPHAMIDE
     Dosage: DOSAGE FORM: INJECTION. DOSE RE-INTRODUCED ENDOXAN + NS.
     Route: 041
  3. 0.9% SODIUM CHLORIDE INJECTION [Suspect]
     Active Substance: SODIUM CHLORIDE
     Indication: MEDICATION DILUTION
     Dosage: ENDOXAN 960 MG + NS 50 ML, 4TH CHEMOTHERAPY
     Route: 041
     Dates: start: 20190219, end: 20190219
  4. ENDOXAN [Suspect]
     Active Substance: CYCLOPHOSPHAMIDE
     Indication: BREAST CANCER FEMALE
     Dosage: DOSAGE FORM: INJECTION. ENDOXAN 960 MG + NS 50 ML, 4TH CHEMOTHERAPY
     Route: 041
     Dates: start: 20190219, end: 20190219
  5. 0.9% SODIUM CHLORIDE INJECTION [Suspect]
     Active Substance: SODIUM CHLORIDE
     Dosage: 1 TO 3 CHEMOTHERAPY, ENDOXAN + NS.
     Route: 041
  6. ENDOXAN [Suspect]
     Active Substance: CYCLOPHOSPHAMIDE
     Dosage: 1 TO 3 CHEMOTHERAPY, DOSAGE FORM: INJECTION. ENDOXAN + NS.
     Route: 041
  7. 0.9% SODIUM CHLORIDE INJECTION [Suspect]
     Active Substance: SODIUM CHLORIDE
     Dosage: DOSE RE-INTRODUCED, PHARMORUBICIN RD + NS.
     Route: 041
  8. 0.9% SODIUM CHLORIDE INJECTION [Suspect]
     Active Substance: SODIUM CHLORIDE
     Dosage: 1 TO 3 CHEMOTHERAPY, PHARMORUBICIN RD + NS.
     Route: 041
  9. 0.9% SODIUM CHLORIDE INJECTION [Suspect]
     Active Substance: SODIUM CHLORIDE
     Dosage: DOSE RE-INTRODUCED, ENDOXAN + NS
     Route: 041
  10. PHARMORUBICIN RD [Suspect]
     Active Substance: EPIRUBICIN
     Dosage: 1 TO 3 CHEMOTHERAPY, PHARMORUBICIN RD + NS.
     Route: 041
  11. 0.9% SODIUM CHLORIDE INJECTION [Suspect]
     Active Substance: SODIUM CHLORIDE
     Dosage: PHARMORUBICIN RD 135 MG + NS 100 ML, 4TH CHEMOTHERAPY
     Route: 041
     Dates: start: 20190219, end: 20190219
  12. PHARMORUBICIN RD [Suspect]
     Active Substance: EPIRUBICIN
     Dosage: DOSE RE-INTRODUCED, PHARMORUBICIN RD + NS.
     Route: 041

REACTIONS (1)
  - Agranulocytosis [Recovered/Resolved]

NARRATIVE: CASE EVENT DATE: 20190303
